FAERS Safety Report 16943353 (Version 3)
Quarter: 2019Q4

REPORT INFORMATION
  Report Type: Report from Study
  Country: US (occurrence: US)
  Receive Date: 20191022
  Receipt Date: 20191128
  Transmission Date: 20200122
  Serious: Yes (Death, Other)
  Sender: FDA-Public Use
  Company Number: US-B.I. PHARMACEUTICALS,INC./RIDGEFIELD-2019-BI-108383

PATIENT
  Sex: Male

DRUGS (6)
  1. GILOTRIF [Suspect]
     Active Substance: AFATINIB
     Indication: NEUROBLASTOMA
     Dosage: ONE TAB DAILY
     Route: 048
     Dates: start: 20190926
  2. BINIMETINIB [Concomitant]
     Active Substance: BINIMETINIB
     Indication: PRODUCT USED FOR UNKNOWN INDICATION
     Route: 065
  3. LORLATINIB [Concomitant]
     Active Substance: LORLATINIB
     Indication: PRODUCT USED FOR UNKNOWN INDICATION
     Route: 065
  4. GILOTRIF [Suspect]
     Active Substance: AFATINIB
     Dosage: DAILY DOSE: 20MG ALTERNATING WITH 40MG EVERY OTHER DAY
     Route: 048
  5. ERLOTINIB [Concomitant]
     Active Substance: ERLOTINIB
     Indication: PRODUCT USED FOR UNKNOWN INDICATION
     Route: 065
  6. SPRYCEL [Concomitant]
     Active Substance: DASATINIB
     Indication: PRODUCT USED FOR UNKNOWN INDICATION
     Route: 065

REACTIONS (7)
  - Mydriasis [Unknown]
  - Sensitive skin [Unknown]
  - Diarrhoea [Unknown]
  - Off label use [Unknown]
  - Malignant neoplasm progression [Fatal]
  - Vision blurred [Unknown]
  - Product use issue [Unknown]
